FAERS Safety Report 7624199-9 (Version None)
Quarter: 2011Q3

REPORT INFORMATION
  Report Type: 
  Country: None (occurrence: None)
  Receive Date: 20110720
  Receipt Date: 20110720
  Transmission Date: 20111222
  Serious: Yes (Life-Threatening)
  Sender: FDA-Public Use
  Company Number: None

PATIENT
  Age: 70 Year
  Sex: Male
  Weight: 89 kg

DRUGS (1)
  1. PHYTONADIONE [Suspect]
     Dosage: 10MG
     Route: 041

REACTIONS (3)
  - CARDIO-RESPIRATORY ARREST [None]
  - PULSE ABSENT [None]
  - BLOOD PRESSURE DECREASED [None]
